FAERS Safety Report 11700683 (Version 2)
Quarter: 2015Q4

REPORT INFORMATION
  Report Type: Report from Study
  Country: US (occurrence: US)
  Receive Date: 20151105
  Receipt Date: 20151216
  Transmission Date: 20160304
  Serious: Yes (Hospitalization)
  Sender: FDA-Public Use
  Company Number: US-ROCHE-1656005

PATIENT
  Sex: Female

DRUGS (8)
  1. DOXEPIN [Concomitant]
     Active Substance: DOXEPIN
  2. XOLAIR [Suspect]
     Active Substance: OMALIZUMAB
     Indication: URTICARIA
     Route: 058
     Dates: start: 20151030
  3. HYDROXYZINE HCL [Concomitant]
     Active Substance: HYDROXYZINE HYDROCHLORIDE
  4. TRIAMCINOLON [Concomitant]
  5. XOLAIR [Suspect]
     Active Substance: OMALIZUMAB
     Indication: PRURITUS
  6. CETIRIZINE [Concomitant]
     Active Substance: CETIRIZINE HYDROCHLORIDE
  7. BENADRYL [Concomitant]
     Active Substance: DIPHENHYDRAMINE HYDROCHLORIDE
  8. XOLAIR [Suspect]
     Active Substance: OMALIZUMAB
     Indication: URTICARIA
     Route: 058
     Dates: start: 20151029

REACTIONS (12)
  - Pruritus [Unknown]
  - Pemphigoid [Not Recovered/Not Resolved]
  - Constipation [Not Recovered/Not Resolved]
  - Injection site swelling [Unknown]
  - Urticaria [Unknown]
  - Paraesthesia [Unknown]
  - Blood pressure increased [Unknown]
  - Speech disorder [Unknown]
  - Rash generalised [Unknown]
  - Dysphagia [Unknown]
  - Dyspnoea [Unknown]
  - Flushing [Unknown]
